FAERS Safety Report 9606334 (Version 3)
Quarter: 2014Q2

REPORT INFORMATION
  Report Type: Spontaneous
  Country: US (occurrence: US)
  Receive Date: 20131008
  Receipt Date: 20140519
  Transmission Date: 20141212
  Serious: No
  Sender: FDA-Public Use
  Company Number: US-AMGEN-USASP2013043989

PATIENT
  Age: 55 Year
  Sex: Female
  Weight: 44.89 kg

DRUGS (11)
  1. PROLIA [Suspect]
     Indication: OSTEOPOROSIS POSTMENOPAUSAL
     Dosage: 60 MG, Q6MO
     Route: 058
     Dates: start: 20121220, end: 20130620
  2. FENTANYL [Concomitant]
  3. SYMBICORT [Concomitant]
  4. PRILOSEC                           /00661201/ [Concomitant]
  5. HYDROCODONE [Concomitant]
  6. NORVASC [Concomitant]
     Indication: HYPERTENSION
     Dosage: 10 MG, QD
  7. SPIRIVA [Concomitant]
     Route: 048
  8. FOLIC ACID [Concomitant]
  9. CLONIDINE [Concomitant]
  10. LORATADINE [Concomitant]
  11. NABUMETONE [Concomitant]
     Indication: PAIN
     Dosage: 750 MG, BID

REACTIONS (3)
  - Headache [Unknown]
  - Rash [Recovered/Resolved]
  - Erythema multiforme [Recovered/Resolved]
